FAERS Safety Report 7468161-8 (Version None)
Quarter: 2011Q2

REPORT INFORMATION
  Report Type: 
  Country: None (occurrence: None)
  Receive Date: 20110509
  Receipt Date: 20110426
  Transmission Date: 20111010
  Serious: No
  Sender: FDA-Public Use
  Company Number: US-ENDO PHARMACEUTICALS INC.-PRAC20110007

PATIENT
  Sex: Male

DRUGS (2)
  1. PROPOXYPHENE HYDROCHLORIDE [Suspect]
     Dosage: UNK
     Route: 048
     Dates: start: 20091001, end: 20101101
  2. PROPOXYPHENE HCL W/ APAP [Suspect]
     Route: 048
     Dates: start: 20091001, end: 20101101

REACTIONS (3)
  - ATRIAL FIBRILLATION [None]
  - MYOCARDIAL INFARCTION [None]
  - HEART RATE IRREGULAR [None]
